FAERS Safety Report 23049976 (Version 1)
Quarter: 2023Q4

REPORT INFORMATION
  Report Type: Spontaneous
  Country: CN (occurrence: CN)
  Receive Date: 20231010
  Receipt Date: 20231010
  Transmission Date: 20240110
  Serious: Yes (Hospitalization)
  Sender: FDA-Public Use
  Company Number: CN-FreseniusKabi-FK202315933

PATIENT
  Age: 72 Year
  Sex: Male
  Weight: 50 kg

DRUGS (2)
  1. KABIVEN [Suspect]
     Active Substance: AMINO ACIDS\ANHYDROUS DEXTROSE\CALCIUM CHLORIDE\MAGNESIUM SULFATE HEPTAHYDRATE\POTASSIUM CHLORIDE\SO
     Indication: Nutritional supplementation
     Route: 041
     Dates: start: 20231001, end: 20231002
  2. Famotidine for Injection [Concomitant]
     Indication: Gastrointestinal disorder
     Route: 041
     Dates: start: 20231001, end: 20231002

REACTIONS (2)
  - Product use complaint [Unknown]
  - Treatment delayed [Unknown]

NARRATIVE: CASE EVENT DATE: 20231002
